FAERS Safety Report 8305242-0 (Version None)
Quarter: 2012Q2

REPORT INFORMATION
  Report Type: 
  Country: None (occurrence: None)
  Receive Date: 20120423
  Receipt Date: 20120417
  Transmission Date: 20120825
  Serious: Yes (Hospitalization)
  Sender: FDA-Public Use
  Company Number: NL-BAYER-2012-036738

PATIENT
  Age: 73 Year
  Sex: Female
  Weight: 84 kg

DRUGS (8)
  1. ATENOLOL AND CHLORTHALIDONE [Concomitant]
     Dosage: 1 DF, QD
  2. NEXAVAR [Suspect]
     Indication: HEPATIC NEOPLASM MALIGNANT
     Dosage: 400 MG, BID
     Dates: start: 20120323, end: 20120326
  3. DESLORATADINE [Concomitant]
     Dosage: 5 MG, QD
  4. ACETAMINOPHEN [Concomitant]
     Dosage: 1000 MG, PRN
  5. PRIMPERAN TAB [Concomitant]
     Dosage: 20 MG, TID
  6. OMEPRAZOLE [Concomitant]
     Dosage: 20 MG, QD
  7. AMLODIPINE [Concomitant]
     Dosage: 5 MG, QD
  8. ALBUTEROL [Concomitant]
     Dosage: 2 DF, PRN

REACTIONS (1)
  - PERICARDITIS [None]
